FAERS Safety Report 8013935-8 (Version None)
Quarter: 2011Q4

REPORT INFORMATION
  Report Type: 
  Country: None (occurrence: None)
  Receive Date: 20111229
  Receipt Date: 20111215
  Transmission Date: 20120403
  Serious: Yes (Hospitalization)
  Sender: FDA-Public Use
  Company Number: FR-ROCHE-1024345

PATIENT
  Sex: Female

DRUGS (17)
  1. LEXOMIL [Concomitant]
  2. ACTEMRA [Suspect]
     Indication: RHEUMATOID ARTHRITIS
     Dates: start: 20100901
  3. ACTEMRA [Suspect]
     Dates: start: 20110413
  4. ACTEMRA [Suspect]
     Dates: start: 20110817
  5. IDARAC [Concomitant]
     Dosage: 3 TABLET A DAY
  6. PREDNISONE TAB [Concomitant]
  7. VENTOLIN [Concomitant]
  8. ACTEMRA [Suspect]
     Dates: start: 20110216
  9. ACTEMRA [Suspect]
     Dates: start: 20110316
  10. ACTEMRA [Suspect]
     Dates: start: 20101116
  11. KETOPROFEN [Concomitant]
  12. ACTEMRA [Suspect]
     Dates: start: 20110118
  13. RIFAMPIN AND ISONIAZID [Concomitant]
  14. METHOTREXATE [Concomitant]
  15. FLUTICASONE PROPIONATE/SALMETEROL [Concomitant]
     Dosage: 500 UG
  16. ACTEMRA [Suspect]
     Dates: start: 20110615
  17. ACTEMRA [Suspect]
     Dates: start: 20101020

REACTIONS (2)
  - BODY MASS INDEX INCREASED [None]
  - GASTRIC BANDING [None]
